FAERS Safety Report 11211923 (Version 1)
Quarter: 2015Q2

REPORT INFORMATION
  Report Type: Spontaneous
  Country: US (occurrence: None)
  Receive Date: 20150622
  Receipt Date: 20150622
  Transmission Date: 20150821
  Serious: Yes (Life-Threatening, Hospitalization)
  Sender: FDA-Public Use
  Company Number: None

PATIENT
  Age: 63 Year
  Sex: Male
  Weight: 87 kg

DRUGS (1)
  1. ABIRATERONE [Suspect]
     Active Substance: ABIRATERONE
     Indication: PROSTATE CANCER METASTATIC
     Route: 048
     Dates: start: 20130422, end: 20130506

REACTIONS (7)
  - Aspartate aminotransferase increased [None]
  - Confusional state [None]
  - Jaundice [None]
  - Blood bilirubin increased [None]
  - Blood alkaline phosphatase increased [None]
  - Hepatic encephalopathy [None]
  - Alanine aminotransferase increased [None]

NARRATIVE: CASE EVENT DATE: 20130506
